FAERS Safety Report 25813496 (Version 1)
Quarter: 2025Q3

REPORT INFORMATION
  Report Type: Spontaneous
  Country: US (occurrence: None)
  Receive Date: 20250917
  Receipt Date: 20250917
  Transmission Date: 20251020
  Serious: Yes (Hospitalization)
  Sender: FDA-CTU
  Company Number: None

PATIENT
  Sex: Male

DRUGS (9)
  1. LENALIDOMIDE [Suspect]
     Active Substance: LENALIDOMIDE
     Indication: Myelodysplastic syndrome
     Route: 048
     Dates: start: 20250815
  2. ATORVASTATIN [Concomitant]
     Active Substance: ATORVASTATIN
  3. COLCHICINE CAP 0.6MG [Concomitant]
  4. FLECAINIDE [Concomitant]
     Active Substance: FLECAINIDE
  5. LANSOPRAZOLE [Concomitant]
     Active Substance: LANSOPRAZOLE
  6. METOPROLOL SUCCINATE [Concomitant]
     Active Substance: METOPROLOL SUCCINATE
  7. PROBENECID TAB 500MG [Concomitant]
  8. REBLOZYL  INJ 25MG [Concomitant]
  9. XARELTO  TAB 15MG [Concomitant]

REACTIONS (5)
  - Contusion [None]
  - Dyspnoea [None]
  - Rash [None]
  - Gout [None]
  - Platelet count decreased [None]
